FAERS Safety Report 15563623 (Version 1)
Quarter: 2018Q4

REPORT INFORMATION
  Report Type: Spontaneous
  Country: US (occurrence: US)
  Receive Date: 20181029
  Receipt Date: 20181029
  Transmission Date: 20190205
  Serious: No
  Sender: FDA-Public Use
  Company Number: US-TEVA-2018-US-969148

PATIENT
  Sex: Male

DRUGS (1)
  1. LOSARTAN POTASSIUM. [Suspect]
     Active Substance: LOSARTAN POTASSIUM
     Indication: HYPERTENSION
     Dosage: 50 MILLIGRAM DAILY;
     Route: 048

REACTIONS (5)
  - Pharyngeal oedema [Not Recovered/Not Resolved]
  - Rhinorrhoea [Unknown]
  - Drug intolerance [Unknown]
  - Fatigue [Not Recovered/Not Resolved]
  - Somnolence [Unknown]
